FAERS Safety Report 8256420-0 (Version None)
Quarter: 2012Q2

REPORT INFORMATION
  Report Type: 
  Country: None (occurrence: None)
  Receive Date: 20120403
  Receipt Date: 20120323
  Transmission Date: 20120825
  Serious: Yes (Other)
  Sender: FDA-Public Use
  Company Number: JP-PFIZER INC-2012079421

PATIENT
  Age: 91 Year
  Sex: Male

DRUGS (3)
  1. CLARITHROMYCIN [Concomitant]
  2. ZOSYN [Suspect]
     Dosage: 4.5 G, 3X/DAY
     Route: 041
     Dates: start: 20110312
  3. ZOSYN [Suspect]
     Dosage: 2.25 G, 3X/DAY
     Route: 041

REACTIONS (2)
  - HEPATIC FAILURE [None]
  - RENAL FAILURE [None]
